FAERS Safety Report 5379963-6 (Version None)
Quarter: 2007Q3

REPORT INFORMATION
  Report Type: 
  Country: None (occurrence: None)
  Receive Date: 20070706
  Receipt Date: 20070627
  Transmission Date: 20080115
  Serious: Yes (Hospitalization)
  Sender: FDA-Public Use
  Company Number: US-JNJFOC-20070606709

PATIENT
  Sex: Female
  Weight: 45.36 kg

DRUGS (8)
  1. FENTANYL TRANSDERMAL SYSTEM [Suspect]
     Indication: PAIN
     Route: 062
  2. LIPITOR [Concomitant]
     Route: 048
  3. LYRICA [Concomitant]
     Indication: DEPRESSION
     Route: 048
  4. PLAVIX [Concomitant]
     Route: 048
  5. PLETAL [Concomitant]
     Indication: ANTICOAGULANT THERAPY
     Route: 048
  6. LUNESTA [Concomitant]
     Route: 048
  7. CYMBALTA [Concomitant]
     Indication: DEPRESSION
     Route: 048
  8. HYDROCODONE BITARTRATE [Concomitant]
     Indication: BREAKTHROUGH PAIN
     Route: 048

REACTIONS (2)
  - DRUG WITHDRAWAL SYNDROME [None]
  - RENAL FAILURE [None]
